FAERS Safety Report 9666251 (Version 1)
Quarter: 2013Q4

REPORT INFORMATION
  Report Type: Report from Study
  Country: US (occurrence: FR)
  Receive Date: 20131104
  Receipt Date: 20131104
  Transmission Date: 20140711
  Serious: Yes (Hospitalization)
  Sender: FDA-Public Use
  Company Number: US-SA-2013SA110997

PATIENT
  Age: 81 Year
  Sex: Male

DRUGS (4)
  1. ELIGARD [Suspect]
     Indication: PROSTATE CANCER
     Route: 065
  2. ENZALUTAMIDE [Suspect]
     Indication: PROSTATE CANCER
     Route: 048
     Dates: start: 20131006, end: 20131010
  3. IXPRIM [Concomitant]
     Indication: PAIN
  4. ISOPTINE [Concomitant]
     Indication: ARRHYTHMIA

REACTIONS (1)
  - Diarrhoea [Recovering/Resolving]
